FAERS Safety Report 5570794-0 (Version None)
Quarter: 2007Q4

REPORT INFORMATION
  Report Type: 
  Country: None (occurrence: None)
  Receive Date: 20071221
  Receipt Date: 20071212
  Transmission Date: 20080405
  Serious: Yes (Life-Threatening)
  Sender: FDA-Public Use
  Company Number: IT-TYCO HEALTHCARE/MALLINCKRODT-T200701576

PATIENT

DRUGS (2)
  1. ULTRA-TECHNEKOW FM [Suspect]
     Indication: SCINTIGRAPHY
     Dosage: 444 MBQ, SINGLE
     Route: 042
     Dates: start: 20071130, end: 20071130
  2. OSTEOCIS HMDP [Suspect]
     Indication: SCINTIGRAPHY
     Dosage: UNK, SINGLE
     Route: 042
     Dates: start: 20071130, end: 20071130

REACTIONS (2)
  - LARYNGEAL OEDEMA [None]
  - RESPIRATORY FAILURE [None]
